FAERS Safety Report 5795590-0 (Version None)
Quarter: 2008Q2

REPORT INFORMATION
  Report Type: 
  Country: None (occurrence: None)
  Receive Date: 20080630
  Receipt Date: 20080620
  Transmission Date: 20081010
  Serious: Yes (Other)
  Sender: FDA-Public Use
  Company Number: CA-PFIZER INC-2008051855

PATIENT
  Age: 59 Year
  Sex: Female
  Weight: 70 kg

DRUGS (1)
  1. SU-011,248 [Suspect]
     Indication: OVARIAN EPITHELIAL CANCER
     Route: 048

REACTIONS (1)
  - KERATOCONJUNCTIVITIS SICCA [None]
